FAERS Safety Report 11794542 (Version 1)
Quarter: 2015Q4

REPORT INFORMATION
  Report Type: Spontaneous
  Country: HR (occurrence: HR)
  Receive Date: 20151202
  Receipt Date: 20151202
  Transmission Date: 20160305
  Serious: Yes (Death)
  Sender: FDA-Public Use
  Company Number: HR-PURDUE PHARMA-GBR-2015-0032340

PATIENT
  Sex: Male

DRUGS (1)
  1. TARGINACT TABLETE S PRODULJENIM OSLOBADANJEM [Suspect]
     Active Substance: NALOXONE HYDROCHLORIDE\OXYCODONE HYDROCHLORIDE
     Indication: PRODUCT USED FOR UNKNOWN INDICATION
     Route: 065

REACTIONS (5)
  - Medication residue present [Unknown]
  - Malignant neoplasm progression [None]
  - Drug ineffective [Unknown]
  - Disease progression [Fatal]
  - Colorectal cancer metastatic [None]
